FAERS Safety Report 13219052 (Version 1)
Quarter: 2017Q1

REPORT INFORMATION
  Report Type: Spontaneous
  Country: PL (occurrence: PL)
  Receive Date: 20170210
  Receipt Date: 20170210
  Transmission Date: 20170428
  Serious: Yes (Other)
  Sender: FDA-Public Use
  Company Number: PL-SUN PHARMACEUTICAL INDUSTRIES LTD-2017RR-133067

PATIENT
  Age: 34 Year
  Sex: Female

DRUGS (7)
  1. DOCETAXEL. [Suspect]
     Active Substance: DOCETAXEL
     Indication: BREAST CANCER STAGE IV
     Dosage: 75 MG/M2, ON DAY ONE, CYCLES EVERY 3 WEEKS
     Route: 042
     Dates: start: 201411
  2. GEMCITABINE [Suspect]
     Active Substance: GEMCITABINE\GEMCITABINE HYDROCHLORIDE
     Indication: LUNG ADENOCARCINOMA METASTATIC
     Dosage: 1000 MG/M2, ON THE FIRST AND EIGHT DAY, CYCLE EVERY THREE WEEKS
     Route: 042
     Dates: start: 201412
  3. DOCETAXEL. [Suspect]
     Active Substance: DOCETAXEL
     Indication: LUNG ADENOCARCINOMA METASTATIC
     Dosage: 75 MG/M2, ON DAY ONE, CYCLE EVERY 3 WEEKS
     Route: 065
  4. DOXORUBICIN [Suspect]
     Active Substance: DOXORUBICIN
     Indication: BREAST CANCER STAGE IV
     Dosage: 50 MG/M2, ON DAY ONE, CYCLES EVERY 3 WEEKS
     Route: 042
     Dates: start: 201411
  5. CISPLATIN. [Suspect]
     Active Substance: CISPLATIN
     Indication: LUNG ADENOCARCINOMA METASTATIC
     Dosage: 80 MG/M2, ON DAY ONE, CYCLE EVERY THREE WEEKS
     Route: 042
     Dates: start: 201412
  6. DOXORUBICIN [Suspect]
     Active Substance: DOXORUBICIN
     Indication: LUNG ADENOCARCINOMA METASTATIC
     Dosage: 50 MG/M2, ON DAY ONE, CYCLE EVERY 3 WEEKS
     Route: 042
  7. CYCLOPHOSPHAMIDE. [Suspect]
     Active Substance: CYCLOPHOSPHAMIDE
     Indication: LUNG ADENOCARCINOMA METASTATIC
     Dosage: 50 MG/M2, ON DAY ONE, CYCLE EVERY 3 WEEKS
     Route: 042

REACTIONS (5)
  - Nausea [Unknown]
  - Neutropenia [Unknown]
  - Asthenia [Unknown]
  - Disease progression [Unknown]
  - Drug ineffective [Unknown]

NARRATIVE: CASE EVENT DATE: 201411
